FAERS Safety Report 7442718-2 (Version None)
Quarter: 2011Q2

REPORT INFORMATION
  Report Type: 
  Country: None (occurrence: None)
  Receive Date: 20110428
  Receipt Date: 20101020
  Transmission Date: 20111010
  Serious: Yes (Life-Threatening, Hospitalization, Disabling)
  Sender: FDA-Public Use
  Company Number: US-BAYER-200937025NA

PATIENT
  Age: 45 Year
  Sex: Female
  Weight: 77 kg

DRUGS (57)
  1. SYNTHROID [Concomitant]
     Indication: THYROID DISORDER
     Dosage: USED LEVOKYL OR SYNTHROID
     Route: 065
     Dates: start: 19920101, end: 20100101
  2. PROTONIX [Concomitant]
     Indication: BACK PAIN
     Dosage: PHARMACY RECORDS: DEC-2008
     Route: 065
     Dates: start: 20081208
  3. MELOXICAM [Concomitant]
     Indication: INTERVERTEBRAL DISC PROTRUSION
     Dosage: PHARMACY RECORDS: DEC-2008
     Route: 065
     Dates: start: 20081120
  4. BUDEPRION [Concomitant]
     Indication: PREMENSTRUAL SYNDROME
     Dosage: PHARMACY RECORDS: DEC-2008
     Route: 065
     Dates: start: 20081205, end: 20081210
  5. NASONEX [Concomitant]
     Dosage: PHARMACY RECORDS: 2007, DEC-2008
     Route: 065
  6. YASMIN [Suspect]
     Indication: ORAL CONTRACEPTION
     Dosage: FROM 2001 OR 2002 UNTIL DEC-2008, ONE PILL DAILY. PHARMACY RECORDS: DEC-2008
     Dates: end: 20081201
  7. YASMIN [Suspect]
     Indication: ACNE
  8. YAZ [Suspect]
     Indication: OVARIAN CYST
  9. WARFARIN [Concomitant]
     Route: 065
     Dates: start: 20081227
  10. WARFARIN [Concomitant]
     Dosage: DOSING 3 MG DAILY EXCEPT THURSDAYS
     Route: 065
     Dates: start: 20090129
  11. SPIRONOLACTONE [Concomitant]
     Indication: UNEVALUABLE EVENT
     Route: 065
     Dates: start: 20040101
  12. DURAGESIC [Concomitant]
     Indication: PAIN
     Route: 065
  13. LEXAPRO [Concomitant]
     Dosage: PHARMACY RECORDS: DEC-2008
     Route: 065
  14. FLEXERIL [Concomitant]
     Dosage: PHARMACY RECORDS: DEC-2008
     Route: 065
  15. XANAX [Concomitant]
     Indication: INITIAL INSOMNIA
     Dosage: ??-DEC-2008
     Route: 065
     Dates: start: 20000101
  16. PENICILLIN V POTASSIUM [Concomitant]
     Indication: PHARYNGITIS STREPTOCOCCAL
     Route: 065
  17. COLACE [Concomitant]
     Indication: CONSTIPATION PROPHYLAXIS
     Route: 065
  18. UNKNOWN DRUG [Concomitant]
     Indication: HEADACHE
     Route: 065
  19. SERTRALINE HYDROCHLORIDE [Concomitant]
     Dosage: PHARMACY RECORDS: JAN-2009
     Route: 065
  20. PROPOXYPHENE HYDROCHLORIDE [Concomitant]
     Dosage: PHARMACY RECORDS: DEC-2008
     Route: 065
     Dates: start: 20081219
  21. LEVOXYL [Concomitant]
     Indication: THYROID DISORDER
     Dosage: USED LEVOKYL OR SYNTHROID
     Route: 042
     Dates: start: 19920101, end: 20100101
  22. LEVOXYL [Concomitant]
     Indication: GOITRE
  23. ADVIL [Concomitant]
     Dates: start: 19990101, end: 20080101
  24. EFFEXOR XR [Concomitant]
     Indication: PAIN
  25. MOBIC [Concomitant]
     Dosage: PHARMACY RECORDS: DEC-2008
     Route: 065
  26. WELLBUTRIN [Concomitant]
     Dosage: PHARMACY RECORDS: DEC-2008
     Route: 065
  27. EFFEXOR XR [Concomitant]
     Indication: PREMENSTRUAL SYNDROME
     Dosage: PHARMACY RECORDS: DEC-2008. OTHER INDICATION: ANXIETY.
     Route: 065
     Dates: start: 20000101
  28. XANAX [Concomitant]
     Indication: ANXIETY
  29. RESTASIS [Concomitant]
     Indication: LACRIMAL DISORDER
     Route: 065
     Dates: start: 20080730
  30. ACETAMINOPHEN W/ PROPOXYPHENE HCL [Concomitant]
     Indication: PAIN
     Dosage: PHARMACY RECORDS: DEC-2008
     Route: 065
     Dates: start: 20081219
  31. LORAZEPAM [Concomitant]
     Indication: ANXIETY
  32. AMBIEN [Concomitant]
     Route: 065
  33. UNKNOWN DRUG [Concomitant]
     Indication: CONTRACEPTION
  34. CELEBREX [Concomitant]
  35. YASMIN [Suspect]
     Indication: PREMENSTRUAL SYNDROME
  36. SYNTHROID [Concomitant]
     Indication: HYPOTHYROIDISM
  37. ANTIBIOTICS [Concomitant]
  38. EFFEXOR XR [Concomitant]
     Indication: DEPRESSION
  39. ACETAMINOPHEN AND HYDROCODONE BITARTRATE [Concomitant]
     Indication: PAIN
  40. GOLYTELY [MACROGOL,KCL,NA BICARB,NACL,NA+ SULF] [Concomitant]
  41. SPIRONOLACTONE [Concomitant]
     Dosage: TWO TABLETS PER DAY
     Route: 065
     Dates: start: 20081109
  42. AMITIZA [Concomitant]
     Indication: IRRITABLE BOWEL SYNDROME
     Dosage: PHARMACY RECORDS: DEC-2008
     Route: 065
     Dates: start: 20081205
  43. BUDEPRION [Concomitant]
     Indication: INITIAL INSOMNIA
  44. PERCOCET [Concomitant]
     Indication: PAIN
     Route: 065
  45. ZOLOFT [Concomitant]
     Route: 065
  46. PENICILLIN VK [Concomitant]
     Route: 065
  47. SYNTHROID [Concomitant]
     Indication: GOITRE
  48. PROTONIX [Concomitant]
     Indication: GASTRITIS
  49. MELOXICAM [Concomitant]
  50. CYCLOBENZAPRINE [Concomitant]
     Indication: BACK PAIN
     Dates: start: 20081120
  51. ESOMEPRAZOLE [Concomitant]
     Route: 042
  52. DILAUDID [Concomitant]
     Indication: PAIN
     Route: 065
  53. BACTRIM [Concomitant]
     Indication: URINARY TRACT INFECTION
     Route: 065
  54. MIRALAX [Concomitant]
     Indication: LAXATIVE SUPPORTIVE CARE
     Route: 065
  55. ASPIRIN [Concomitant]
     Route: 065
  56. MERIDIA [Concomitant]
     Indication: WEIGHT DECREASED
     Dosage: 15 MG, QD
     Route: 065
     Dates: start: 20070301, end: 20090101
  57. ESOMERPRAZOLE SODIUM [Concomitant]
     Route: 042

REACTIONS (32)
  - MOBILITY DECREASED [None]
  - IMPAIRED DRIVING ABILITY [None]
  - POSTOPERATIVE ILEUS [None]
  - PULMONARY EMBOLISM [None]
  - SKIN ATROPHY [None]
  - PELVIC HAEMATOMA [None]
  - TEARFULNESS [None]
  - INAPPROPRIATE AFFECT [None]
  - SKIN DISCOLOURATION [None]
  - SWELLING [None]
  - SKIN TURGOR DECREASED [None]
  - AFFECTIVE DISORDER [None]
  - PAIN [None]
  - PAIN IN EXTREMITY [None]
  - POST THROMBOTIC SYNDROME [None]
  - PLEURAL EFFUSION [None]
  - CONFUSIONAL STATE [None]
  - DEPRESSED MOOD [None]
  - RETROPERITONEAL HAEMORRHAGE [None]
  - DEHYDRATION [None]
  - PLATELET COUNT DECREASED [None]
  - TENSION [None]
  - AFFECT LABILITY [None]
  - AGITATION [None]
  - ANXIETY [None]
  - THROMBOSIS [None]
  - FEAR [None]
  - DEEP VEIN THROMBOSIS [None]
  - VARICOSE VEIN [None]
  - SKIN WARM [None]
  - DISSEMINATED INTRAVASCULAR COAGULATION [None]
  - CONVERSION DISORDER [None]
